FAERS Safety Report 5347625-7 (Version None)
Quarter: 2007Q2

REPORT INFORMATION
  Report Type: 
  Country: None (occurrence: None)
  Receive Date: 20070604
  Receipt Date: 20070604
  Transmission Date: 20071010
  Serious: Yes (Hospitalization, Other)
  Sender: FDA-Public Use
  Company Number: None

PATIENT
  Sex: Female
  Weight: 58.9676 kg

DRUGS (1)
  1. CLINDAMYCIN HCL [Suspect]
     Indication: GINGIVAL INFECTION
     Dosage: 300 MG EVERY 6 HRS PO
     Route: 048
     Dates: start: 20070522, end: 20070527

REACTIONS (3)
  - BLOOD GLUCOSE DECREASED [None]
  - RASH [None]
  - VOMITING [None]
